FAERS Safety Report 7099563-X (Version None)
Quarter: 2010Q4

REPORT INFORMATION
  Report Type: 
  Country: None (occurrence: None)
  Receive Date: 20101112
  Receipt Date: 20101109
  Transmission Date: 20110411
  Serious: Yes (Death)
  Sender: FDA-Public Use
  Company Number: HR-ABBOTT-10P-216-0670616-00

PATIENT
  Sex: Male

DRUGS (2)
  1. HUMIRA [Suspect]
     Indication: CROHN'S DISEASE
     Dates: start: 20100401, end: 20100902
  2. SULFASALAZINE [Concomitant]
     Indication: CROHN'S DISEASE

REACTIONS (3)
  - ACUTE ABDOMEN [None]
  - COMPUTERISED TOMOGRAM ABDOMEN ABNORMAL [None]
  - RASH [None]
